FAERS Safety Report 24384328 (Version 1)
Quarter: 2024Q4

REPORT INFORMATION
  Report Type: Spontaneous
  Country: US (occurrence: US)
  Receive Date: 20241001
  Receipt Date: 20241001
  Transmission Date: 20250115
  Serious: No
  Sender: ALKERMES
  Company Number: US-ALKERMES INC.-ALK-2024-002447

PATIENT

DRUGS (1)
  1. VIVITROL [Suspect]
     Active Substance: NALTREXONE
     Indication: Product used for unknown indication
     Dosage: 390 MILLIGRAM, Q 3-4 WEEKS (USUALLY Q 4 WEEKS OR ONCE MONTHLY)
     Route: 030

REACTIONS (1)
  - Off label use [Unknown]
